FAERS Safety Report 7530249-0 (Version None)
Quarter: 2011Q2

REPORT INFORMATION
  Report Type: 
  Country: None (occurrence: None)
  Receive Date: 20110607
  Receipt Date: 20110527
  Transmission Date: 20111010
  Serious: Yes (Hospitalization)
  Sender: FDA-Public Use
  Company Number: IT-JNJFOC-20110512721

PATIENT
  Sex: Male
  Weight: 87 kg

DRUGS (5)
  1. ABIRATERONE ACETATE [Suspect]
     Indication: PROSTATE CANCER METASTATIC
     Route: 048
     Dates: start: 20110214, end: 20110425
  2. BISOPROLOL FUMARATE [Concomitant]
     Indication: ARRHYTHMIA
     Dates: start: 20110101
  3. ABIRATERONE ACETATE [Suspect]
     Route: 048
  4. FENTANYL [Concomitant]
     Indication: PAIN
     Dates: start: 20101201, end: 20110525
  5. PREDNISOLONE [Suspect]
     Indication: PROSTATE CANCER METASTATIC
     Route: 065
     Dates: start: 20110214, end: 20110525

REACTIONS (1)
  - PULMONARY EMBOLISM [None]
